FAERS Safety Report 4588379-1 (Version None)
Quarter: 2005Q1

REPORT INFORMATION
  Report Type: 
  Country: None (occurrence: None)
  Receive Date: 20050216
  Receipt Date: 20050216
  Transmission Date: 20050727
  Serious: Yes (Hospitalization)
  Sender: FDA-Public Use
  Company Number: None

PATIENT
  Age: 73 Year
  Sex: Female
  Weight: 33.5662 kg

DRUGS (8)
  1. PARNATE [Suspect]
     Indication: MAJOR DEPRESSION
     Dosage: 20 MG PO BID
     Route: 048
     Dates: start: 20040714, end: 20041221
  2. PARNATE [Suspect]
     Indication: PSYCHOTIC DISORDER
     Dosage: 20 MG PO BID
     Route: 048
     Dates: start: 20040714, end: 20041221
  3. ATORVASTATIN CALCIUM [Concomitant]
  4. CHLORAL HYDRATE [Concomitant]
  5. LANSOPRAZOLE [Concomitant]
  6. LEVOTHYROXINE SODIUM [Concomitant]
  7. LORAZEPAM [Concomitant]
  8. OLANZAPINE [Concomitant]

REACTIONS (2)
  - BLOOD PRESSURE DECREASED [None]
  - ORAL INTAKE REDUCED [None]
